FAERS Safety Report 7493094-0 (Version None)
Quarter: 2011Q2

REPORT INFORMATION
  Report Type: 
  Country: None (occurrence: None)
  Receive Date: 20110519
  Receipt Date: 20110519
  Transmission Date: 20111010
  Serious: Yes (Other)
  Sender: FDA-Public Use
  Company Number: None

PATIENT
  Age: 30 Year
  Sex: Male
  Weight: 113.3993 kg

DRUGS (4)
  1. FINNASTERIDE [Concomitant]
  2. HUMIRA [Suspect]
     Dosage: 40MG BI-WEEKLY SQ
     Route: 058
     Dates: start: 20110227, end: 20110501
  3. ISONIAZID [Concomitant]
  4. PYRIDOXINE HCL [Concomitant]

REACTIONS (3)
  - ARTHRALGIA [None]
  - BONE PAIN [None]
  - RASH PUSTULAR [None]
